FAERS Safety Report 23642153 (Version 1)
Quarter: 2024Q1

REPORT INFORMATION
  Report Type: Spontaneous
  Country: JP (occurrence: JP)
  Receive Date: 20240318
  Receipt Date: 20240318
  Transmission Date: 20240410
  Serious: Yes (Hospitalization, Other)
  Sender: FDA-Public Use
  Company Number: JP-CHEPLA-2024003326

PATIENT
  Age: 72 Year
  Sex: Male

DRUGS (8)
  1. CAPECITABINE [Suspect]
     Active Substance: CAPECITABINE
     Indication: Colon cancer stage III
     Dosage: 8 COURSES OF?POSTOPERATIVE ADJUVANT CHEMOTHERAPY
  2. CAPECITABINE [Suspect]
     Active Substance: CAPECITABINE
     Indication: Colon cancer stage III
     Dosage: 8 COURSES OF ADJUVANT?CHEMOTHERAPY
  3. OXALIPLATIN [Suspect]
     Active Substance: OXALIPLATIN
     Indication: Colon cancer stage III
     Dosage: 8 COURSES OF?POSTOPERATIVE ADJUVANT CHEMOTHERAPY
  4. BEVACIZUMAB [Suspect]
     Active Substance: BEVACIZUMAB
     Indication: Colon cancer stage III
     Dosage: 8 COURSES OF ADJUVANT?CHEMOTHERAPY
  5. BEVACIZUMAB [Suspect]
     Active Substance: BEVACIZUMAB
     Indication: Colon cancer stage III
     Dosage: FOLFIRI + BV 49 COURSES
  6. FLUOROURACIL [Suspect]
     Active Substance: FLUOROURACIL
     Indication: Colon cancer stage III
     Dosage: FOLFIRI + BV 49 COURSES
  7. LEUCOVORIN [Suspect]
     Active Substance: LEUCOVORIN\LEUCOVORIN CALCIUM
     Indication: Colon cancer stage III
     Dosage: FOLFIRI + BV 49 COURSES
  8. IRINOTECAN [Suspect]
     Active Substance: IRINOTECAN
     Indication: Colon cancer stage III
     Dosage: FOLFIRI + BV 49 COURSES

REACTIONS (3)
  - Spondylitis [Unknown]
  - Metastases to peritoneum [Unknown]
  - Implant site infection [Unknown]
